FAERS Safety Report 10206952 (Version 2)
Quarter: 2014Q4

REPORT INFORMATION
  Report Type: Spontaneous
  Country: US (occurrence: US)
  Receive Date: 20140530
  Receipt Date: 20141031
  Transmission Date: 20150528
  Serious: Yes (Other)
  Sender: FDA-Public Use
  Company Number: US-ABBVIE-14P-163-1216599-00

PATIENT
  Sex: Female

DRUGS (1)
  1. DRONABINOL. [Suspect]
     Active Substance: DRONABINOL
     Indication: PRODUCT USED FOR UNKNOWN INDICATION
     Route: 048

REACTIONS (16)
  - Prescribed overdose [Unknown]
  - Fear [Unknown]
  - Feeling abnormal [Unknown]
  - Phobia [Unknown]
  - Fear of death [Unknown]
  - Chest pain [Unknown]
  - Nightmare [Unknown]
  - Confusional state [Unknown]
  - Abnormal dreams [Unknown]
  - Insomnia [Unknown]
  - Depression [Unknown]
  - Thrombosis [Unknown]
  - Flashback [Unknown]
  - Anger [Unknown]
  - Anxiety [Unknown]
  - Myocardial infarction [Unknown]
